FAERS Safety Report 5268073-4 (Version None)
Quarter: 2007Q1

REPORT INFORMATION
  Report Type: 
  Country: None (occurrence: None)
  Receive Date: 20070319
  Receipt Date: 20070305
  Transmission Date: 20070707
  Serious: Yes (Other)
  Sender: FDA-Public Use
  Company Number: SA-ELI_LILLY_AND_COMPANY-SA200702005642

PATIENT
  Age: 34 Year
  Sex: Male

DRUGS (4)
  1. ZYPREXA [Suspect]
     Indication: AGITATION
     Dosage: 10 MG, OTHER
     Route: 030
  2. ZYPREXA [Concomitant]
     Indication: BIPOLAR DISORDER
     Dosage: 20 MG, DAILY (1/D)
  3. REMERON [Concomitant]
     Indication: INSOMNIA
     Dosage: 30 MG, UNK
  4. STESOLID [Concomitant]
     Indication: AGITATION
     Dosage: 10 MG, UNK

REACTIONS (4)
  - CONVULSION [None]
  - HYPERSOMNIA [None]
  - MYOCLONUS [None]
  - SLEEP APNOEA SYNDROME [None]
